FAERS Safety Report 6696977-4 (Version None)
Quarter: 2010Q2

REPORT INFORMATION
  Report Type: 
  Country: None (occurrence: None)
  Receive Date: 20100426
  Receipt Date: 20100421
  Transmission Date: 20101027
  Serious: Yes (Death, Other)
  Sender: FDA-Public Use
  Company Number: PHHY2009JP50908

PATIENT
  Sex: Male

DRUGS (2)
  1. GLEEVEC [Suspect]
     Indication: CHRONIC MYELOID LEUKAEMIA
     Dosage: 400 MG/DAY
     Route: 048
     Dates: start: 20030101, end: 20070912
  2. GLEEVEC [Suspect]
     Dosage: 200 - 400 MG/DAY
     Route: 048
     Dates: start: 20070923, end: 20080603

REACTIONS (18)
  - BLOOD CREATINE PHOSPHOKINASE INCREASED [None]
  - DECREASED APPETITE [None]
  - DYSPNOEA [None]
  - GASTRECTOMY [None]
  - GASTRIC CANCER STAGE I [None]
  - GASTRIC TUBE RECONSTRUCTION [None]
  - HAEMORRHAGIC DISORDER [None]
  - HYPERBILIRUBINAEMIA [None]
  - LUNG ABSCESS [None]
  - MARROW HYPERPLASIA [None]
  - NEOPLASM MALIGNANT [None]
  - OPERATIVE HAEMORRHAGE [None]
  - PLATELET COUNT DECREASED [None]
  - PLEURAL EFFUSION [None]
  - PULMONARY CONGESTION [None]
  - PULMONARY OEDEMA [None]
  - RESPIRATORY FAILURE [None]
  - SIGNET-RING CELL CARCINOMA [None]
